FAERS Safety Report 9058624 (Version 1)
Quarter: 2013Q1

REPORT INFORMATION
  Report Type: Report from Study
  Country: CA (occurrence: CA)
  Receive Date: 20130211
  Receipt Date: 20130211
  Transmission Date: 20140127
  Serious: Yes (Other)
  Sender: FDA-Public Use
  Company Number: CA-JNJFOC-20130201150

PATIENT
  Sex: Female

DRUGS (3)
  1. REMICADE [Suspect]
     Indication: EXPOSURE VIA BODY FLUID
     Route: 050
     Dates: start: 20080903
  2. REMICADE [Suspect]
     Indication: EXPOSURE VIA BODY FLUID
     Route: 050
     Dates: start: 20130131
  3. HYDROCORTISONE [Suspect]
     Indication: EXPOSURE VIA BODY FLUID
     Route: 050

REACTIONS (2)
  - Hyperemesis gravidarum [Not Recovered/Not Resolved]
  - Exposure during pregnancy [Not Recovered/Not Resolved]
